FAERS Safety Report 7513310-6 (Version None)
Quarter: 2011Q2

REPORT INFORMATION
  Report Type: 
  Country: None (occurrence: None)
  Receive Date: 20110525
  Receipt Date: 20110525
  Transmission Date: 20111010
  Serious: Yes (Other)
  Sender: FDA-Public Use
  Company Number: None

PATIENT
  Age: 56 Year
  Sex: Female
  Weight: 82.1011 kg

DRUGS (2)
  1. LIVALO [Suspect]
     Indication: BLOOD CHOLESTEROL
     Dosage: 1 A DAY
     Dates: start: 20110429
  2. LIVALO [Suspect]
     Indication: BLOOD CHOLESTEROL
     Dosage: 1 A DAY
     Dates: start: 20110501

REACTIONS (2)
  - BACK PAIN [None]
  - GAIT DISTURBANCE [None]
